FAERS Safety Report 12454912 (Version 2)
Quarter: 2016Q4

REPORT INFORMATION
  Report Type: Spontaneous
  Country: US (occurrence: US)
  Receive Date: 20160610
  Receipt Date: 20161017
  Transmission Date: 20170207
  Serious: No
  Sender: FDA-Public Use
  Company Number: US-PFIZER INC-2016267097

PATIENT
  Sex: Male

DRUGS (1)
  1. DEPO-TESTOSTERONE [Suspect]
     Active Substance: TESTOSTERONE CYPIONATE
     Dosage: 0.7 ML, WEEKLY (200 MG/ML WITH THE 10 ML VIAL)
     Route: 030

REACTIONS (2)
  - Conjunctivitis [Recovered/Resolved]
  - Seasonal allergy [Recovering/Resolving]
